FAERS Safety Report 18361192 (Version 5)
Quarter: 2021Q1

REPORT INFORMATION
  Report Type: Report from Study
  Country: US (occurrence: US)
  Receive Date: 20201008
  Receipt Date: 20210320
  Transmission Date: 20210419
  Serious: No
  Sender: FDA-Public Use
  Company Number: NVSC2020US272183

PATIENT
  Sex: Female

DRUGS (2)
  1. COSENTYX [Suspect]
     Active Substance: SECUKINUMAB
     Indication: PSORIASIS
     Dosage: 300 MG, QW (ONCE A WEEK FOR 5 WEEKS AND THEN Q 4 WEEKS)
     Route: 058
     Dates: start: 20201001
  2. COSENTYX [Suspect]
     Active Substance: SECUKINUMAB
     Dosage: 300 MG, Q4W, ONCE A WEEK FOR 5 WEEKS AND THEN Q 4
     Route: 058

REACTIONS (8)
  - Skin exfoliation [Unknown]
  - Abdominal discomfort [Unknown]
  - Psoriasis [Not Recovered/Not Resolved]
  - Pruritus [Recovering/Resolving]
  - Abdominal pain lower [Unknown]
  - Rhinorrhoea [Unknown]
  - Drug ineffective [Not Recovered/Not Resolved]
  - Dry skin [Unknown]
